FAERS Safety Report 8234277-1 (Version None)
Quarter: 2012Q1

REPORT INFORMATION
  Report Type: 
  Country: None (occurrence: None)
  Receive Date: 20120321
  Receipt Date: 20120312
  Transmission Date: 20120608
  Serious: Yes (Death)
  Sender: FDA-Public Use
  Company Number: ACO_29690_2012

PATIENT
  Age: 57 Year
  Sex: Male

DRUGS (9)
  1. BACLOFEN [Concomitant]
  2. STRESSTAB /02364401/ (ASCORBIC ACID, BIOTIN, CALCIUM PANTOTHENATE, CYA [Concomitant]
  3. BETASERON [Concomitant]
  4. AMPYRA [Suspect]
     Indication: MULTIPLE SCLEROSIS
     Dosage: 10 MG, Q 12 HRS, ORAL
     Route: 048
     Dates: start: 20110928
  5. HYDROCHLOROTHIAZIDE WITH TRIAMTERENE (HYDROCHLOROTHIAZIDE, TRIAMTERENE [Concomitant]
  6. FLEXERIL [Concomitant]
  7. PROVIGIL [Concomitant]
  8. XANAX [Concomitant]
  9. DIOVAN [Concomitant]

REACTIONS (1)
  - DEATH [None]
